FAERS Safety Report 16030887 (Version 1)
Quarter: 2019Q1

REPORT INFORMATION
  Report Type: Spontaneous
  Country: US (occurrence: US)
  Receive Date: 20190304
  Receipt Date: 20190304
  Transmission Date: 20190418
  Serious: No
  Sender: FDA-Public Use
  Company Number: US-PFIZER INC-2019093636

PATIENT
  Age: 44 Year
  Sex: Female

DRUGS (8)
  1. DILANTIN [Suspect]
     Active Substance: PHENYTOIN
     Dosage: UNK
  2. ZOLOFT [Suspect]
     Active Substance: SERTRALINE HYDROCHLORIDE
     Dosage: UNK
  3. SULFACET R [Suspect]
     Active Substance: SULFACETAMIDE SODIUM\SULFUR
     Dosage: UNK
  4. TRAMADOL. [Suspect]
     Active Substance: TRAMADOL
     Dosage: UNK
  5. NUBAIN [Suspect]
     Active Substance: NALBUPHINE HYDROCHLORIDE
     Dosage: UNK
  6. AMOXICILLIN. [Suspect]
     Active Substance: AMOXICILLIN
     Dosage: UNK
  7. DROPERIDOL. [Suspect]
     Active Substance: DROPERIDOL
     Dosage: UNK
  8. LACTULOSE. [Suspect]
     Active Substance: LACTULOSE
     Dosage: UNK

REACTIONS (1)
  - Drug hypersensitivity [Unknown]
